FAERS Safety Report 12130268 (Version 1)
Quarter: 2016Q1

REPORT INFORMATION
  Report Type: Spontaneous
  Country: US (occurrence: US)
  Receive Date: 20160301
  Receipt Date: 20160301
  Transmission Date: 20160526
  Serious: No
  Sender: FDA-Public Use
  Company Number: US-THE MEDICINES COMPANY-US-MDCO-15-00520

PATIENT
  Sex: Female

DRUGS (2)
  1. ORBACTIV [Suspect]
     Active Substance: ORITAVANCIN
     Indication: MUSCLE SWELLING
     Dosage: NOT REPORTED
     Dates: start: 20150511, end: 20150511
  2. ORBACTIV [Suspect]
     Active Substance: ORITAVANCIN
     Dates: start: 201505

REACTIONS (2)
  - No adverse event [Unknown]
  - Wrong drug administered [Unknown]
